FAERS Safety Report 18606718 (Version 1)
Quarter: 2020Q4

REPORT INFORMATION
  Report Type: Spontaneous
  Country: JP (occurrence: JP)
  Receive Date: 20201211
  Receipt Date: 20201211
  Transmission Date: 20210114
  Serious: Yes (Hospitalization)
  Sender: FDA-Public Use
  Company Number: JP-JNJFOC-20201221213

PATIENT

DRUGS (2)
  1. DAYVIGO [Concomitant]
     Active Substance: LEMBOREXANT
     Dosage: DOSE UNKNOWN
     Route: 048
  2. ITRIZOLE [Suspect]
     Active Substance: ITRACONAZOLE
     Indication: PRODUCT USED FOR UNKNOWN INDICATION
     Dosage: DOSE UNKNOWN
     Route: 048

REACTIONS (1)
  - Hospitalisation [Unknown]
